FAERS Safety Report 23339209 (Version 1)
Quarter: 2023Q4

REPORT INFORMATION
  Report Type: Spontaneous
  Country: PT (occurrence: PT)
  Receive Date: 20231226
  Receipt Date: 20231226
  Transmission Date: 20240110
  Serious: Yes (Death, Hospitalization, Other)
  Sender: FDA-Public Use
  Company Number: PT-SLATERUN-2023SRLIT00035

PATIENT
  Age: 6 Decade
  Sex: Male

DRUGS (1)
  1. BUPROPION [Suspect]
     Active Substance: BUPROPION
     Indication: Major depression
     Route: 045

REACTIONS (11)
  - Cardio-respiratory arrest [Fatal]
  - Overdose [Fatal]
  - Intentional product misuse [Fatal]
  - Drug abuse [Fatal]
  - Acute myocardial infarction [Fatal]
  - Drug dependence [Unknown]
  - Dyspnoea [Unknown]
  - Psychomotor hyperactivity [Unknown]
  - Sinus tachycardia [Unknown]
  - Product use issue [Unknown]
  - Wrong technique in product usage process [Unknown]
